FAERS Safety Report 5877772-2 (Version None)
Quarter: 2008Q3

REPORT INFORMATION
  Report Type: 
  Country: None (occurrence: None)
  Receive Date: 20080911
  Receipt Date: 20080901
  Transmission Date: 20090109
  Serious: Yes (Hospitalization)
  Sender: FDA-Public Use
  Company Number: PH-NOVOPROD-277265

PATIENT
  Sex: Female
  Weight: 58.957 kg

DRUGS (5)
  1. NOVOLOG MIX 70/30 [Suspect]
     Indication: TYPE 2 DIABETES MELLITUS
     Dosage: 28 IU, QD
     Route: 058
     Dates: start: 20070201, end: 20080601
  2. NOVOLOG MIX 70/30 [Suspect]
     Dosage: 20-0-12
     Route: 058
     Dates: start: 20080601, end: 20080709
  3. NOVOLOG MIX 70/30 [Suspect]
     Dosage: 64 IU, QD
     Route: 058
     Dates: start: 20080709
  4. GLIMEPIRIDE [Concomitant]
     Dosage: 2 MG, QD
  5. VERSANT XR [Concomitant]
     Dosage: 5 MG, QD

REACTIONS (3)
  - HYPERGLYCAEMIA [None]
  - HYPERGLYCAEMIC HYPEROSMOLAR NONKETOTIC SYNDROME [None]
  - URINARY TRACT INFECTION [None]
